FAERS Safety Report 14038184 (Version 2)
Quarter: 2018Q3

REPORT INFORMATION
  Report Type: Report from Study
  Country: CA (occurrence: CA)
  Receive Date: 20171004
  Receipt Date: 20180918
  Transmission Date: 20181010
  Serious: Yes (Other)
  Sender: FDA-Public Use
  Company Number: CA-ROCHE-2001276

PATIENT
  Sex: Male

DRUGS (8)
  1. HYDROXYCHLOROQUINE [Concomitant]
     Active Substance: HYDROXYCHLOROQUINE
  2. RITUXAN [Suspect]
     Active Substance: RITUXIMAB
     Indication: RHEUMATOID ARTHRITIS
     Route: 042
     Dates: start: 20170203
  3. OXYNEO [Concomitant]
     Active Substance: OXYCODONE
  4. ATORVASTATIN [Concomitant]
     Active Substance: ATORVASTATIN
  5. LEFLUNOMIDE. [Concomitant]
     Active Substance: LEFLUNOMIDE
  6. FOLIC ACID. [Concomitant]
     Active Substance: FOLIC ACID
  7. SYMBICORT [Concomitant]
     Active Substance: BUDESONIDE\FORMOTEROL FUMARATE DIHYDRATE
  8. SALBUTAMOL [Concomitant]
     Active Substance: ALBUTEROL

REACTIONS (7)
  - Atrial fibrillation [Unknown]
  - Feeling abnormal [Unknown]
  - Thyroid cancer [Unknown]
  - Heart rate increased [Unknown]
  - Weight increased [Unknown]
  - Thyroid disorder [Unknown]
  - Pericarditis [Unknown]

NARRATIVE: CASE EVENT DATE: 2018
